FAERS Safety Report 11449274 (Version 1)
Quarter: 2015Q3

REPORT INFORMATION
  Report Type: Report from Study
  Country: UG (occurrence: UG)
  Receive Date: 20150902
  Receipt Date: 20150902
  Transmission Date: 20151125
  Serious: Yes (Other)
  Sender: FDA-Public Use
  Company Number: UG-ABBVIE-15P-165-1454564-00

PATIENT
  Age: 27 Year
  Sex: Female

DRUGS (6)
  1. VIREAD [Suspect]
     Active Substance: TENOFOVIR DISOPROXIL FUMARATE
     Indication: HIV INFECTION
     Dosage: ONE COURSE, PRIOR TO CONCEPTION, 1ST TRIMESTER EARLIEST EXPOSURE
     Route: 048
     Dates: start: 20060207, end: 20090303
  2. EPIVIR [Suspect]
     Active Substance: LAMIVUDINE
     Indication: HIV INFECTION
     Dosage: ONE COURSE, PRIOR TO CONCEPTION, 1ST TRIMESTER EARLIEST EXPOSURE
     Route: 048
     Dates: start: 20051213
  3. KALETRA [Suspect]
     Active Substance: LOPINAVIR\RITONAVIR
     Indication: HIV INFECTION
     Dosage: ONE COURSE, NOT PRIOR TO CONCEPTION, 2ND TRIMESTER EARLIEST EXPOSURE
     Route: 048
     Dates: start: 20090303
  4. SUSTIVA [Suspect]
     Active Substance: EFAVIRENZ
     Indication: HIV INFECTION
     Dosage: ONE COURSE, PRIOR TO CONCEPTION, 1ST TRIMESTER EARLIEST EXPOSURE
     Route: 048
     Dates: start: 20060206, end: 20081212
  5. VIRAMUNE [Suspect]
     Active Substance: NEVIRAPINE
     Indication: HIV INFECTION
     Dosage: ONE COURSE, NOT PRIOR TO CONCEPTION, 1ST TRIMESTER EARLIEST EXPOSURE
     Route: 048
     Dates: start: 20081226, end: 20090303
  6. ZIAGEN [Suspect]
     Active Substance: ABACAVIR SULFATE
     Indication: HIV INFECTION
     Dosage: ONE COURSE, NOT PRIOR TO CONCEPTION, 2ND TRIMESTER EARLIEST EXPOSURE
     Route: 048
     Dates: start: 20090303

REACTIONS (2)
  - Abortion spontaneous [Unknown]
  - Exposure during pregnancy [Unknown]

NARRATIVE: CASE EVENT DATE: 20090315
